FAERS Safety Report 4269871-6 (Version None)
Quarter: 2004Q1

REPORT INFORMATION
  Report Type: 
  Country: None (occurrence: None)
  Receive Date: 20040114
  Receipt Date: 20040108
  Transmission Date: 20041129
  Serious: Yes (Hospitalization)
  Sender: FDA-Public Use
  Company Number: 200410060DE

PATIENT
  Age: 53 Year
  Sex: Female

DRUGS (6)
  1. DOCETAXEL [Suspect]
     Indication: BREAST CANCER
     Route: 042
     Dates: start: 20031230, end: 20031230
  2. DOXORUBICIN HCL [Suspect]
     Indication: BREAST CANCER
     Dates: start: 20031230, end: 20031230
  3. CYCLOPHOSPHAMIDE [Suspect]
     Indication: BREAST CANCER
     Dates: start: 20031230, end: 20031230
  4. FORTECORTIN [Concomitant]
     Dates: end: 20040103
  5. VOMEX [Concomitant]
     Route: 048
     Dates: end: 20040103
  6. TARIVID ORAL [Concomitant]
     Route: 048
     Dates: end: 20040103

REACTIONS (2)
  - CARDIOVASCULAR DISORDER [None]
  - NEUTROPENIA [None]
